FAERS Safety Report 15724999 (Version 3)
Quarter: 2019Q2

REPORT INFORMATION
  Report Type: Report from Study
  Country: CO (occurrence: CO)
  Receive Date: 20181214
  Receipt Date: 20190626
  Transmission Date: 20190711
  Serious: Yes (Hospitalization)
  Sender: FDA-Public Use
  Company Number: PHHY2018CO177133

PATIENT
  Sex: Female

DRUGS (1)
  1. TYKERB [Suspect]
     Active Substance: LAPATINIB DITOSYLATE
     Indication: BREAST CANCER
     Dosage: 1250 MG, QD
     Route: 048
     Dates: start: 201710

REACTIONS (6)
  - Influenza [Unknown]
  - Pleural effusion [Unknown]
  - Malaise [Unknown]
  - Dyspnoea [Unknown]
  - Cough [Unknown]
  - General physical condition abnormal [Unknown]
